FAERS Safety Report 8616214-0 (Version None)
Quarter: 2012Q3

REPORT INFORMATION
  Report Type: 
  Country: None (occurrence: None)
  Receive Date: 20120809
  Receipt Date: 20120725
  Transmission Date: 20120928
  Serious: Yes (Death, Other)
  Sender: FDA-Public Use
  Company Number: 2012MA009148

PATIENT
  Age: 29 Year
  Sex: Male
  Weight: 106 kg

DRUGS (3)
  1. ETHANOL [Suspect]
     Indication: INTENTIONAL DRUG MISUSE
  2. HEROIN [Suspect]
     Indication: INTENTIONAL DRUG MISUSE
  3. KADIAN [Suspect]
     Indication: INTENTIONAL DRUG MISUSE

REACTIONS (6)
  - PULMONARY CONGESTION [None]
  - TOXICITY TO VARIOUS AGENTS [None]
  - ALCOHOL POISONING [None]
  - PULMONARY OEDEMA [None]
  - CARDIOMEGALY [None]
  - ACCIDENTAL DEATH [None]
